FAERS Safety Report 6186934-9 (Version None)
Quarter: 2009Q2

REPORT INFORMATION
  Report Type: 
  Country: None (occurrence: None)
  Receive Date: 20090512
  Receipt Date: 20090508
  Transmission Date: 20091009
  Serious: Yes (Hospitalization)
  Sender: FDA-Public Use
  Company Number: US-WYE-H09194909

PATIENT
  Sex: Female
  Weight: 67.19 kg

DRUGS (8)
  1. BLINDED THERAPY [Suspect]
     Indication: RHEUMATOID ARTHRITIS
     Route: 042
     Dates: start: 20090302
  2. MULTI-VITAMINS [Concomitant]
     Indication: MEDICAL DIET
     Dosage: UNSPECIFIED
     Dates: start: 20000101
  3. BENADRYL [Concomitant]
     Indication: PRURITUS
     Dosage: UNSPECIFIED
     Dates: start: 20090312, end: 20090312
  4. FOLIC ACID [Concomitant]
     Indication: MEDICAL DIET
     Dosage: UNSPECIFIED
     Dates: start: 19980101
  5. ADVIL [Suspect]
     Indication: RHEUMATOID ARTHRITIS
     Dosage: UNSPECIFIED DOSE (MORE THAN 4 TABLETS PER DAY)
     Route: 048
     Dates: start: 20090201, end: 20090425
  6. ADVIL [Suspect]
     Route: 048
     Dates: start: 20090425
  7. METHOTREXATE [Suspect]
     Indication: RHEUMATOID ARTHRITIS
     Dosage: UNSPECIFIED
     Dates: start: 19980101
  8. LOVAZA [Concomitant]
     Indication: MEDICAL DIET
     Dosage: UNSPECIFIED
     Dates: start: 20080101

REACTIONS (2)
  - OESOPHAGEAL ULCER [None]
  - SINUS TACHYCARDIA [None]
